FAERS Safety Report 20817187 (Version 5)
Quarter: 2025Q4

REPORT INFORMATION
  Report Type: Report from Study
  Country: BR (occurrence: BR)
  Receive Date: 20220512
  Receipt Date: 20251228
  Transmission Date: 20260117
  Serious: Yes (Hospitalization, Other)
  Sender: CELLTRION
  Company Number: BR-CELLTRION INC.-2022BR006233

PATIENT

DRUGS (11)
  1. INFLIXIMAB-DYYB [Suspect]
     Active Substance: INFLIXIMAB-DYYB
     Indication: Colitis
     Dosage: 4 AMPOLES WITH 350ML EVERY 6 WEEKS; LAST INFUSION: 13 APR 2022
     Dates: start: 2010
  2. INFLIXIMAB-DYYB [Suspect]
     Active Substance: INFLIXIMAB-DYYB
     Indication: Spondylitis
     Dosage: 4 AMPOLES WITH 350ML EVERY 6 WEEKS; LAST INFUSION: 13 APR 2022
     Dates: start: 20220413
  3. INFLIXIMAB-DYYB [Suspect]
     Active Substance: INFLIXIMAB-DYYB
     Indication: Ankylosing spondylitis
     Dosage: EVERY 6 WEEKS/ 350 MG EVERY 6 WEEKS
     Route: 042
     Dates: start: 20211006
  4. INFLIXIMAB-DYYB [Suspect]
     Active Substance: INFLIXIMAB-DYYB
     Dosage: 350 MG EVERY MONTH (30 DAYS)
     Route: 042
     Dates: start: 20251030
  5. INFLIXIMAB-DYYB [Suspect]
     Active Substance: INFLIXIMAB-DYYB
     Dosage: 350MG EVERY MONTH
     Route: 042
     Dates: start: 20251203
  6. DIAMICRON [Concomitant]
     Indication: Type 1 diabetes mellitus
     Dosage: 60 MG, DAILY (DATE OF ADMINISTRATION: ONE YEAR AGO / STILL IN USE)
     Route: 048
  7. ZOLPIDEM [Concomitant]
     Active Substance: ZOLPIDEM TARTRATE
     Indication: Somnolence
     Dosage: 10MG - 1 PILL PER NIGHT (STARTED 4 MONTHS AGO / STILL IN USE)
     Route: 048
  8. RIVOTRIL [Concomitant]
     Active Substance: CLONAZEPAM
     Indication: Feeling of relaxation
     Dosage: 1GM
     Route: 065
  9. RIVOTRIL [Concomitant]
     Active Substance: CLONAZEPAM
     Indication: Sleep disorder
  10. GLICLAZIDE [Concomitant]
     Active Substance: GLICLAZIDE
     Indication: Diabetes mellitus
     Dosage: 2 PILLS A DAY
     Route: 065
  11. NICOTINIC ACID [Concomitant]
     Active Substance: NIACIN
     Indication: Supplementation therapy
     Dosage: 2000 IU A DAY
     Route: 065

REACTIONS (15)
  - Nephrolithiasis [Unknown]
  - Surgery [Not Recovered/Not Resolved]
  - Colitis ulcerative [Unknown]
  - Urinary tract infection [Recovered/Resolved]
  - Epididymitis [Unknown]
  - Testicular oedema [Unknown]
  - Weight decreased [Unknown]
  - Pain [Unknown]
  - Headache [Unknown]
  - Influenza [Unknown]
  - Metapneumovirus infection [Recovered/Resolved]
  - Fatigue [Recovered/Resolved]
  - Intentional dose omission [Unknown]
  - Overdose [Unknown]
  - Intentional product use issue [Unknown]

NARRATIVE: CASE EVENT DATE: 20220426
